FAERS Safety Report 14259718 (Version 1)
Quarter: 2017Q4

REPORT INFORMATION
  Report Type: Spontaneous
  Country: GB (occurrence: GB)
  Receive Date: 20171207
  Receipt Date: 20171207
  Transmission Date: 20180321
  Serious: Yes (Death)
  Sender: FDA-Public Use
  Company Number: GB-PFIZER INC-2017521322

PATIENT
  Age: 30 Year
  Sex: Male

DRUGS (4)
  1. ALCOHOL. [Suspect]
     Active Substance: ALCOHOL
  2. COCAINE [Suspect]
     Active Substance: COCAINE
  3. HEROIN [Suspect]
     Active Substance: DIAMORPHINE
     Dosage: 0.5 G, UNK
  4. PREGABALIN. [Suspect]
     Active Substance: PREGABALIN
     Indication: ANXIETY

REACTIONS (3)
  - Drug abuse [Fatal]
  - Alcohol poisoning [Fatal]
  - Toxicity to various agents [Fatal]
